FAERS Safety Report 7232140-6 (Version None)
Quarter: 2011Q1

REPORT INFORMATION
  Report Type: 
  Country: None (occurrence: None)
  Receive Date: 20110119
  Receipt Date: 20110110
  Transmission Date: 20110831
  Serious: Yes (Hospitalization)
  Sender: FDA-Public Use
  Company Number: 193868

PATIENT
  Age: 46 Year
  Sex: Male

DRUGS (2)
  1. AVONEX [Suspect]
     Indication: MULTIPLE SCLEROSIS
     Route: 030
     Dates: start: 20030516, end: 20030801
  2. AVONEX [Suspect]
     Route: 030
     Dates: start: 20030801

REACTIONS (20)
  - THROMBOSIS [None]
  - DEVICE ISSUE [None]
  - MOBILITY DECREASED [None]
  - INTERVERTEBRAL DISC DISORDER [None]
  - CHILLS [None]
  - TEMPERATURE REGULATION DISORDER [None]
  - PROCEDURAL PAIN [None]
  - INTERVERTEBRAL DISC PROTRUSION [None]
  - HIP ARTHROPLASTY [None]
  - SKIN ULCER [None]
  - GAIT DISTURBANCE [None]
  - AMNESIA [None]
  - LIMB INJURY [None]
  - COLD SWEAT [None]
  - MALAISE [None]
  - HYPOTENSION [None]
  - ARTHRITIS [None]
  - FALL [None]
  - CARDIOVASCULAR DISORDER [None]
  - IMPAIRED HEALING [None]
